FAERS Safety Report 4440884-4 (Version None)
Quarter: 2004Q3

REPORT INFORMATION
  Report Type: 
  Country: None (occurrence: None)
  Receive Date: 20040728
  Receipt Date: 20040324
  Transmission Date: 20050211
  Serious: No
  Sender: FDA-Public Use
  Company Number: USA040155809

PATIENT
  Age: 43 Year
  Sex: Female
  Weight: 65 kg

DRUGS (1)
  1. STRATTERA [Suspect]
     Indication: ATTENTION DEFICIT/HYPERACTIVITY DISORDER
     Dosage: 80 MG/DAY
     Route: 048
     Dates: start: 20030701, end: 20040201

REACTIONS (6)
  - ANAEMIA [None]
  - DRUG INEFFECTIVE [None]
  - HYPOAESTHESIA [None]
  - INFLUENZA [None]
  - INSOMNIA [None]
  - SKIN DISCOLOURATION [None]
